FAERS Safety Report 19120771 (Version 1)
Quarter: 2021Q2

REPORT INFORMATION
  Report Type: Spontaneous
  Country: GB (occurrence: GB)
  Receive Date: 20210412
  Receipt Date: 20210412
  Transmission Date: 20210717
  Serious: Yes (Hospitalization, Other)
  Sender: FDA-Public Use
  Company Number: GB-BION-009640

PATIENT
  Age: 30 Year
  Sex: Female

DRUGS (2)
  1. METHYLPHENIDATE. [Concomitant]
     Active Substance: METHYLPHENIDATE
  2. LOPERAMIDE HYDROCHLORIDE. [Suspect]
     Active Substance: LOPERAMIDE HYDROCHLORIDE
     Dosage: TAPERED TO 30 MG/ DAY

REACTIONS (4)
  - Bundle branch block [Recovering/Resolving]
  - Drug abuse [Unknown]
  - Atrioventricular block first degree [Recovering/Resolving]
  - Electrocardiogram QT prolonged [Recovering/Resolving]
